APPROVED DRUG PRODUCT: DEFERASIROX
Active Ingredient: DEFERASIROX
Strength: 180MG
Dosage Form/Route: TABLET;ORAL
Application: A212995 | Product #003 | TE Code: AB
Applicant: PIRAMAL HEALTHCARE UK LTD
Approved: Jun 15, 2020 | RLD: No | RS: No | Type: RX